FAERS Safety Report 20356837 (Version 1)
Quarter: 2022Q1

REPORT INFORMATION
  Report Type: Spontaneous
  Country: US (occurrence: None)
  Receive Date: 20220119
  Receipt Date: 20220119
  Transmission Date: 20220423
  Serious: No
  Sender: FDA-Public Use
  Company Number: None

PATIENT
  Age: 27 Year
  Sex: Female
  Weight: 99 kg

DRUGS (6)
  1. METFORMIN [Suspect]
     Active Substance: METFORMIN HYDROCHLORIDE
     Indication: Type 2 diabetes mellitus
     Dosage: OTHER QUANTITY : 1 TABLET(S);?FREQUENCY : TWICE A DAY;?
     Route: 048
     Dates: start: 20220110
  2. ADVAIR HFA [Concomitant]
     Active Substance: FLUTICASONE PROPIONATE\SALMETEROL XINAFOATE
  3. levothryroxine [Concomitant]
  4. ALBUTEROL [Concomitant]
     Active Substance: ALBUTEROL
  5. PROBIOTICS NOS [Concomitant]
     Active Substance: PROBIOTICS NOS
  6. FIBER [Concomitant]
     Active Substance: PSYLLIUM HUSK

REACTIONS (4)
  - Asthenia [None]
  - Abnormal dreams [None]
  - Night sweats [None]
  - Fatigue [None]

NARRATIVE: CASE EVENT DATE: 20220117
